FAERS Safety Report 7032773-6 (Version None)
Quarter: 2010Q4

REPORT INFORMATION
  Report Type: 
  Country: None (occurrence: None)
  Receive Date: 20101007
  Receipt Date: 20100928
  Transmission Date: 20110411
  Serious: Yes (Other)
  Sender: FDA-Public Use
  Company Number: US-PFIZER INC-2010123443

PATIENT
  Sex: Male

DRUGS (3)
  1. SERTRALINE HYDROCHLORIDE [Suspect]
     Indication: MAJOR DEPRESSION
     Dosage: 25MG DAILY
     Route: 048
     Dates: start: 20100101
  2. SERTRALINE HYDROCHLORIDE [Suspect]
     Dosage: 100 MG, 1X/DAY
  3. VICODIN [Concomitant]
     Indication: SCIATICA
     Dosage: UNK

REACTIONS (3)
  - EUPHORIC MOOD [None]
  - PROTRUSION TONGUE [None]
  - TIC [None]
